FAERS Safety Report 8794153 (Version 2)
Quarter: 2012Q4

REPORT INFORMATION
  Report Type: 
  Country: UY (occurrence: UY)
  Receive Date: 20120917
  Receipt Date: 20120921
  Transmission Date: 20130627
  Serious: Yes (Death, Hospitalization, Other)
  Sender: FDA-Public Use
  Company Number: UY-BAXTER-2012BAX016352

PATIENT
  Age: 68 Year
  Sex: Female

DRUGS (2)
  1. DIANEAL PD-2 [Suspect]
     Indication: PERITONEAL DIALYSIS
     Route: 033
  2. OMEPRAZOLE [Concomitant]
     Indication: DRUG USE FOR UNKNOWN INDICATION
     Route: 065

REACTIONS (6)
  - Sepsis [Fatal]
  - Abdominal distension [Fatal]
  - Fungal peritonitis [Recovering/Resolving]
  - Peritonitis bacterial [Recovering/Resolving]
  - Klebsiella test positive [None]
  - Enterococcus test positive [None]
